FAERS Safety Report 23434253 (Version 2)
Quarter: 2024Q1

REPORT INFORMATION
  Report Type: Report from Study
  Country: CA (occurrence: CA)
  Receive Date: 20240123
  Receipt Date: 20240130
  Transmission Date: 20240409
  Serious: Yes (Other)
  Sender: FDA-Public Use
  Company Number: CA-BAUSCH-BL-2023-008754

PATIENT
  Age: 35 Year
  Sex: Male
  Weight: 100 kg

DRUGS (3)
  1. SILIQ [Suspect]
     Active Substance: BRODALUMAB
     Indication: Psoriasis
     Dosage: 210MG/1.5ML INDUCTION, WEEK 0 - WEEK 1, WEEK 2 - 09/JUN/2023
     Route: 058
     Dates: start: 20230526, end: 20230609
  2. SILIQ [Suspect]
     Active Substance: BRODALUMAB
     Dosage: 210MG/1.5ML, Q 2WEEKS
     Route: 058
     Dates: start: 20230630
  3. VITAMINS [Concomitant]
     Active Substance: VITAMINS
     Indication: Product used for unknown indication

REACTIONS (10)
  - Gastric ulcer [Unknown]
  - Chest pain [Recovered/Resolved]
  - Anxiety [Not Recovered/Not Resolved]
  - Dyspepsia [Unknown]
  - Abdominal pain upper [Unknown]
  - Mood swings [Unknown]
  - Product availability issue [Unknown]
  - Product use issue [Unknown]
  - Product distribution issue [Unknown]
  - Therapy interrupted [Unknown]

NARRATIVE: CASE EVENT DATE: 20230602
